FAERS Safety Report 24203765 (Version 6)
Quarter: 2024Q3

REPORT INFORMATION
  Report Type: Report from Study
  Country: CA (occurrence: CA)
  Receive Date: 20240813
  Receipt Date: 20240925
  Transmission Date: 20241017
  Serious: Yes (Other)
  Sender: NOVARTIS
  Company Number: CA-002147023-NVSC2024CA156094

PATIENT
  Age: 50 Year
  Sex: Female

DRUGS (2)
  1. COSENTYX [Suspect]
     Active Substance: SECUKINUMAB
     Indication: Psoriatic arthropathy
     Dosage: 150 MG, 0, 1, 2, 3, AND 4 WEEKS
     Route: 058
     Dates: start: 20240719
  2. COSENTYX [Suspect]
     Active Substance: SECUKINUMAB
     Dosage: 150 MG, QMO (MONTHLY)
     Route: 058
     Dates: end: 20240830

REACTIONS (9)
  - Lower respiratory tract infection [Unknown]
  - Rheumatoid arthritis [Unknown]
  - COVID-19 [Unknown]
  - Back pain [Unknown]
  - Musculoskeletal chest pain [Unknown]
  - Psoriasis [Unknown]
  - Arthralgia [Unknown]
  - Joint swelling [Unknown]
  - Nodal osteoarthritis [Unknown]

NARRATIVE: CASE EVENT DATE: 20240701
